FAERS Safety Report 6818574-X (Version None)
Quarter: 2010Q3

REPORT INFORMATION
  Report Type: 
  Country: None (occurrence: None)
  Receive Date: 20100706
  Receipt Date: 20081029
  Transmission Date: 20110219
  Serious: No
  Sender: FDA-Public Use
  Company Number: US-PFIZER INC-2008091251

PATIENT

DRUGS (1)
  1. ZITHROMAX [Suspect]
     Dosage: UNK
     Route: 042

REACTIONS (2)
  - INFUSION SITE EXTRAVASATION [None]
  - PAIN IN EXTREMITY [None]
